FAERS Safety Report 17427654 (Version 1)
Quarter: 2020Q1

REPORT INFORMATION
  Report Type: Spontaneous
  Country: LB (occurrence: LB)
  Receive Date: 20200218
  Receipt Date: 20200218
  Transmission Date: 20200409
  Serious: Yes (Other)
  Sender: FDA-Public Use
  Company Number: LB-NOVAST LABORATORIES LTD.-2020NOV000016

PATIENT
  Age: 65 Year
  Sex: Male

DRUGS (1)
  1. LIDOCAINE. [Suspect]
     Active Substance: LIDOCAINE
     Indication: LOCAL ANAESTHESIA
     Dosage: 20 MILLILITER OF 2 % GEL INTRAURETHRAL INSTILLATION
     Route: 066

REACTIONS (1)
  - Supraventricular tachycardia [Recovered/Resolved]
